FAERS Safety Report 11735137 (Version 1)
Quarter: 2015Q4

REPORT INFORMATION
  Report Type: Spontaneous
  Country: CH (occurrence: CH)
  Receive Date: 20151113
  Receipt Date: 20151113
  Transmission Date: 20160304
  Serious: Yes (Life-Threatening, Hospitalization, Other)
  Sender: FDA-Public Use
  Company Number: CH-TEVA-606945ISR

PATIENT
  Age: 24 Year
  Sex: Male
  Weight: 100 kg

DRUGS (5)
  1. FLOXYFRAL 100 MG [Suspect]
     Active Substance: FLUVOXAMINE MALEATE
     Indication: SCHIZOPHRENIA, PARANOID TYPE
     Dosage: 100 MILLIGRAM DAILY;
     Route: 048
     Dates: start: 20141103
  2. CLOPIN ECO 25 [Interacting]
     Active Substance: CLOZAPINE
     Indication: SCHIZOPHRENIA, PARANOID TYPE
     Dosage: 50 MILLIGRAM DAILY;
     Route: 048
     Dates: start: 20141110
  3. TOPIRAMAT-MEPHA TEVA [Suspect]
     Active Substance: TOPIRAMATE
     Indication: WEIGHT INCREASED
     Dosage: 200 MILLIGRAM DAILY;
     Route: 048
     Dates: start: 20141212
  4. FLUANXOL 5 MG, DRAGEES [Interacting]
     Active Substance: FLUPENTIXOL DIHYDROCHLORIDE
     Dosage: 5 MILLIGRAM DAILY;
     Route: 048
     Dates: start: 20141024
  5. PANTOZOL [Suspect]
     Active Substance: PANTOPRAZOLE SODIUM
     Indication: ABDOMINAL DISCOMFORT
     Dosage: 20 MILLIGRAM DAILY;
     Route: 048

REACTIONS (5)
  - Pulmonary embolism [Recovering/Resolving]
  - Weight increased [Recovering/Resolving]
  - Pulmonary infarction [Recovering/Resolving]
  - Pneumonia [Recovering/Resolving]
  - Drug interaction [Unknown]

NARRATIVE: CASE EVENT DATE: 20141212
